FAERS Safety Report 15117127 (Version 4)
Quarter: 2018Q3

REPORT INFORMATION
  Report Type: Report from Study
  Country: CA (occurrence: CA)
  Receive Date: 20180706
  Receipt Date: 20180806
  Transmission Date: 20181010
  Serious: Yes (Other)
  Sender: FDA-Public Use
  Company Number: CA-BAYER-2018-116198

PATIENT
  Age: 49 Year
  Sex: Male

DRUGS (4)
  1. KOVALTRY [Suspect]
     Active Substance: ANTIHEMOPHILIC FACTOR, HUMAN RECOMBINANT
     Indication: FACTOR VIII DEFICIENCY
     Dosage: 1800 IU, QD
     Route: 042
  2. KOVALTRY [Suspect]
     Active Substance: ANTIHEMOPHILIC FACTOR, HUMAN RECOMBINANT
     Indication: FACTOR VIII DEFICIENCY
     Dosage: 1000 IU, QD
     Route: 042
  3. KOVALTRY [Suspect]
     Active Substance: ANTIHEMOPHILIC FACTOR, HUMAN RECOMBINANT
     Indication: FACTOR VIII DEFICIENCY
     Dosage: 1000 IU, QD
     Route: 042
  4. CLONAZEPAM. [Suspect]
     Active Substance: CLONAZEPAM

REACTIONS (18)
  - Stress [None]
  - Fatigue [Not Recovered/Not Resolved]
  - Mental disorder [None]
  - Depression [None]
  - Injection site exfoliation [Recovered/Resolved]
  - Injection site irritation [Recovering/Resolving]
  - Anxiety [None]
  - Speech disorder [None]
  - Affect lability [Recovering/Resolving]
  - Rebound effect [None]
  - Somnolence [Not Recovered/Not Resolved]
  - Vessel puncture site erythema [Recovering/Resolving]
  - Injection site dryness [Recovered/Resolved]
  - Joint range of motion decreased [Recovering/Resolving]
  - Panic attack [None]
  - Incorrect drug administration rate [None]
  - Injection site bruising [Not Recovered/Not Resolved]
  - Somnolence [Not Recovered/Not Resolved]

NARRATIVE: CASE EVENT DATE: 201806
